FAERS Safety Report 7622514-3 (Version None)
Quarter: 2011Q3

REPORT INFORMATION
  Report Type: 
  Country: None (occurrence: None)
  Receive Date: 20110719
  Receipt Date: 20110719
  Transmission Date: 20111222
  Serious: Yes (Other)
  Sender: FDA-Public Use
  Company Number: None

PATIENT
  Sex: Male
  Weight: 81.6475 kg

DRUGS (1)
  1. COLCRYS [Suspect]
     Indication: GOUT
     Dosage: 0.6 ONCE DAILY PO
     Route: 048
     Dates: start: 20110712, end: 20110716

REACTIONS (2)
  - GINGIVAL SWELLING [None]
  - PARONYCHIA [None]
